FAERS Safety Report 12926476 (Version 1)
Quarter: 2016Q4

REPORT INFORMATION
  Report Type: Spontaneous
  Country: US (occurrence: US)
  Receive Date: 20161109
  Receipt Date: 20161109
  Transmission Date: 20170207
  Serious: Yes (Other)
  Sender: FDA-Public Use
  Company Number: US-TEVA-708455USA

PATIENT
  Age: 33 Year
  Sex: Male
  Weight: 97 kg

DRUGS (1)
  1. TRISENOX [Suspect]
     Active Substance: ARSENIC TRIOXIDE
     Indication: ACUTE PROMYELOCYTIC LEUKAEMIA
     Route: 065
     Dates: start: 201402, end: 201409

REACTIONS (4)
  - Bone erosion [Not Recovered/Not Resolved]
  - Bone lesion [Unknown]
  - Nuclear magnetic resonance imaging abnormal [Unknown]
  - Bone pain [Not Recovered/Not Resolved]

NARRATIVE: CASE EVENT DATE: 201402
